FAERS Safety Report 9547174 (Version 1)
Quarter: 2013Q3

REPORT INFORMATION
  Report Type: Spontaneous
  Country: US (occurrence: US)
  Receive Date: 20130924
  Receipt Date: 20130924
  Transmission Date: 20140515
  Serious: No
  Sender: FDA-Public Use
  Company Number: US-009507513-1308USA010576

PATIENT
  Sex: Male

DRUGS (3)
  1. PEGINTRON [Suspect]
     Dosage: REDIPEN
     Route: 058
     Dates: start: 20130812
  2. REBETOL [Suspect]
     Dosage: UNK
     Route: 048
     Dates: start: 20130821
  3. VICTRELIS [Suspect]
     Dosage: UNK
     Route: 048
     Dates: start: 20130918

REACTIONS (2)
  - Pruritus [Unknown]
  - Arthropod bite [Unknown]
